FAERS Safety Report 4317743-0 (Version None)
Quarter: 2004Q1

REPORT INFORMATION
  Report Type: 
  Country: None (occurrence: None)
  Receive Date: 20040315
  Receipt Date: 20030303
  Transmission Date: 20041129
  Serious: Yes (Hospitalization, Other)
  Sender: FDA-Public Use
  Company Number: CA-BRISTOL-MYERS SQUIBB COMPANY-12305876

PATIENT
  Age: 60 Year
  Sex: Male
  Weight: 91 kg

DRUGS (4)
  1. ETOPOSIDE [Suspect]
     Indication: PROSTATE CANCER
     Route: 048
     Dates: start: 20030418, end: 20030418
  2. TAXOL [Suspect]
     Indication: PROSTATE CANCER
     Route: 042
     Dates: start: 20030410, end: 20030410
  3. ESTRAMUSTINE [Suspect]
     Indication: PROSTATE CANCER
     Route: 048
     Dates: start: 20030418, end: 20030418
  4. COUMADIN [Suspect]

REACTIONS (6)
  - EPISTAXIS [None]
  - FEBRILE NEUTROPENIA [None]
  - MEDICATION ERROR [None]
  - PHLEBITIS SUPERFICIAL [None]
  - PULMONARY EMBOLISM [None]
  - THROMBOCYTOPENIA [None]
